FAERS Safety Report 19294443 (Version 1)
Quarter: 2021Q2

REPORT INFORMATION
  Report Type: Spontaneous
  Country: US (occurrence: US)
  Receive Date: 20210524
  Receipt Date: 20210524
  Transmission Date: 20210717
  Serious: No
  Sender: FDA-Public Use
  Company Number: None

PATIENT
  Age: 59 Year
  Sex: Female
  Weight: 114.31 kg

DRUGS (1)
  1. CIMZIA [Suspect]
     Active Substance: CERTOLIZUMAB PEGOL
     Indication: RHEUMATOID ARTHRITIS
     Dosage: INJECT :200MG (1 SYRINGE) SUBCUTANEOUSLY EVERY 2 WEEKS AS DIRECTED?
     Route: 058
     Dates: start: 202104

REACTIONS (3)
  - Paraesthesia [None]
  - Hypoaesthesia [None]
  - Burning sensation [None]
